FAERS Safety Report 18239491 (Version 1)
Quarter: 2020Q3

REPORT INFORMATION
  Report Type: Spontaneous
  Country: GB (occurrence: GB)
  Receive Date: 20200908
  Receipt Date: 20200908
  Transmission Date: 20201103
  Serious: Yes (Hospitalization, Other)
  Sender: FDA-Public Use
  Company Number: GB-AUROBINDO-AUR-APL-2020-046511

PATIENT
  Age: 41 Year
  Sex: Male
  Weight: 100 kg

DRUGS (1)
  1. NAPROXEN TABLET [Suspect]
     Active Substance: NAPROXEN
     Indication: BACK PAIN
     Dosage: 1000 MILLIGRAM, ONCE A DAY (FOR 3/7)
     Route: 065
     Dates: start: 20200201

REACTIONS (2)
  - Duodenal ulcer [Recovered/Resolved]
  - Helicobacter test positive [Unknown]

NARRATIVE: CASE EVENT DATE: 20200813
